FAERS Safety Report 8862048 (Version 2)
Quarter: 2012Q4

REPORT INFORMATION
  Report Type: 
  Country: NL (occurrence: NL)
  Receive Date: 20121026
  Receipt Date: 20121101
  Transmission Date: 20130627
  Serious: No
  Sender: FDA-Public Use
  Company Number: NL-UCBSA-068170

PATIENT
  Age: 53 Year
  Sex: Male

DRUGS (2)
  1. KEPPRA [Suspect]
     Indication: EPILEPSY
     Route: 048
     Dates: start: 201001, end: 201206
  2. DEXAMETHASON [Concomitant]

REACTIONS (1)
  - Visual impairment [Not Recovered/Not Resolved]
